FAERS Safety Report 11029564 (Version 1)
Quarter: 2015Q2

REPORT INFORMATION
  Report Type: Spontaneous
  Country: US (occurrence: None)
  Receive Date: 20150413
  Receipt Date: 20150413
  Transmission Date: 20150821
  Serious: Yes (Other)
  Sender: FDA-Public Use
  Company Number: US-MDCO-15-00077

PATIENT
  Sex: Male

DRUGS (1)
  1. ORBACTIV [Suspect]
     Active Substance: ORITAVANCIN
     Indication: ENTEROCOCCAL INFECTION
     Dates: start: 201501

REACTIONS (6)
  - Oedema [None]
  - Weight increased [None]
  - Disease progression [None]
  - Cardiac failure congestive [None]
  - Lung disorder [None]
  - Dyspnoea [None]
